FAERS Safety Report 9439655 (Version 2)
Quarter: 2013Q3

REPORT INFORMATION
  Report Type: Spontaneous
  Country: US (occurrence: US)
  Receive Date: 20130805
  Receipt Date: 20130813
  Transmission Date: 20140515
  Serious: Yes (Other)
  Sender: FDA-Public Use
  Company Number: US-PFIZER INC-2013222723

PATIENT
  Sex: 0

DRUGS (2)
  1. EPIPEN [Suspect]
     Indication: FOOD ALLERGY
     Dosage: UNK
  2. EPIPEN [Suspect]
     Indication: DYSPNOEA

REACTIONS (1)
  - Drug ineffective [Unknown]
